FAERS Safety Report 4511666-X (Version None)
Quarter: 2004Q4

REPORT INFORMATION
  Report Type: 
  Country: None (occurrence: None)
  Receive Date: 20041123
  Receipt Date: 20041123
  Transmission Date: 20050328
  Serious: No
  Sender: FDA-Public Use
  Company Number: None

PATIENT
  Sex: Male

DRUGS (2)
  1. PROPOFOL 1000 MG/100 ML BAXTER [Suspect]
     Indication: ANAESTHESIA
     Dosage: 4000 MG CONTINUOUS IV
     Route: 041
     Dates: start: 20040816, end: 20040817
  2. PROPOFOL 1000 MG/100 ML BAXTER [Suspect]
     Indication: RADIOFREQUENCY ABLATION
     Dosage: 4000 MG CONTINUOUS IV
     Route: 041
     Dates: start: 20040816, end: 20040817

REACTIONS (1)
  - PRIAPISM [None]
